FAERS Safety Report 7798792-7 (Version None)
Quarter: 2011Q4

REPORT INFORMATION
  Report Type: 
  Country: None (occurrence: None)
  Receive Date: 20111004
  Receipt Date: 20111004
  Transmission Date: 20120403
  Serious: No
  Sender: FDA-Public Use
  Company Number: None

PATIENT
  Age: 64 Year
  Sex: Female
  Weight: 79.3795 kg

DRUGS (2)
  1. CARISOPRODOL [Suspect]
     Indication: POLIOMYELITIS
     Dosage: 350 MG 1 A NITE
     Dates: start: 20110913
  2. CARISOPRODOL [Suspect]
     Indication: POLIOMYELITIS
     Dosage: 350 MG 1 A NITE
     Dates: start: 20110914

REACTIONS (2)
  - PRODUCT SUBSTITUTION ISSUE [None]
  - PRODUCT MEASURED POTENCY ISSUE [None]
